FAERS Safety Report 15936313 (Version 1)
Quarter: 2019Q1

REPORT INFORMATION
  Report Type: Spontaneous
  Country: FR (occurrence: FR)
  Receive Date: 20190208
  Receipt Date: 20190208
  Transmission Date: 20190417
  Serious: Yes (Death, Hospitalization, Other)
  Sender: FDA-Public Use
  Company Number: FR-ASTRAZENECA-2006CG00129

PATIENT
  Age: 26249 Day
  Sex: Male
  Weight: 62 kg

DRUGS (10)
  1. ZOLADEX [Suspect]
     Active Substance: GOSERELIN ACETATE
     Indication: PROSTATE CANCER
     Route: 058
     Dates: start: 200412
  2. ZOLADEX [Suspect]
     Active Substance: GOSERELIN ACETATE
     Indication: PROSTATE CANCER
     Route: 058
     Dates: start: 20050105
  3. SETRON [Concomitant]
     Indication: PROPHYLAXIS OF NAUSEA AND VOMITING
     Dates: start: 20051123, end: 20051123
  4. MUPHORAN [Suspect]
     Active Substance: FOTEMUSTINE
     Indication: MALIGNANT MELANOMA
     Route: 042
     Dates: start: 20051116, end: 20051116
  5. MUPHORAN [Suspect]
     Active Substance: FOTEMUSTINE
     Indication: MALIGNANT MELANOMA
     Route: 042
     Dates: start: 20051123, end: 20051123
  6. MUPHORAN [Suspect]
     Active Substance: FOTEMUSTINE
     Indication: MALIGNANT MELANOMA
     Route: 042
     Dates: start: 20051107, end: 20051107
  7. ZOPHREN [Concomitant]
     Active Substance: ONDANSETRON
     Indication: PROPHYLAXIS OF NAUSEA AND VOMITING
     Dosage: 8.0MG UNKNOWN
     Route: 042
     Dates: start: 20051107, end: 20051107
  8. ZOLADEX [Suspect]
     Active Substance: GOSERELIN ACETATE
     Indication: PROSTATE CANCER
     Route: 058
     Dates: start: 200311
  9. ACTRAPID [Concomitant]
     Active Substance: INSULIN HUMAN
  10. LANTUS [Concomitant]
     Active Substance: INSULIN GLARGINE
     Indication: DIABETES MELLITUS
     Dosage: 28 INTERNATIONAL UNITS, DAILY

REACTIONS (1)
  - Dermatomyositis [Fatal]

NARRATIVE: CASE EVENT DATE: 20051116
